FAERS Safety Report 11745278 (Version 1)
Quarter: 2015Q4

REPORT INFORMATION
  Report Type: Spontaneous
  Country: US (occurrence: US)
  Receive Date: 20151117
  Receipt Date: 20151117
  Transmission Date: 20160304
  Serious: No
  Sender: FDA-Public Use
  Company Number: US-LUPIN PHARMACEUTICALS INC.-E2B_00004115

PATIENT
  Sex: Male
  Weight: 14.53 kg

DRUGS (1)
  1. CEPHALEXIN FOR ORAL SUSPENSION [Suspect]
     Active Substance: CEPHALEXIN
     Indication: LYMPH GLAND INFECTION
     Route: 048
     Dates: start: 201412

REACTIONS (1)
  - Rash generalised [Recovered/Resolved]
